FAERS Safety Report 23877392 (Version 4)
Quarter: 2024Q3

REPORT INFORMATION
  Report Type: Report from Study
  Country: CA (occurrence: CA)
  Receive Date: 20240521
  Receipt Date: 20240709
  Transmission Date: 20241016
  Serious: Yes (Hospitalization, Other)
  Sender: ABBVIE
  Company Number: CA-ABBVIE-5765387

PATIENT
  Age: 83 Year
  Sex: Female

DRUGS (1)
  1. SKYRIZI [Suspect]
     Active Substance: RISANKIZUMAB-RZAA
     Indication: Crohn^s disease
     Route: 058
     Dates: start: 20240309

REACTIONS (7)
  - Intestinal resection [Recovering/Resolving]
  - Arthropathy [Unknown]
  - Unevaluable event [Not Recovered/Not Resolved]
  - Osteoarthritis [Unknown]
  - Thrombosis [Unknown]
  - Intestinal resection [Unknown]
  - Arthralgia [Unknown]

NARRATIVE: CASE EVENT DATE: 20240101
